FAERS Safety Report 16310698 (Version 1)
Quarter: 2019Q2

REPORT INFORMATION
  Report Type: Spontaneous
  Country: US (occurrence: US)
  Receive Date: 20190513
  Receipt Date: 20190513
  Transmission Date: 20190711
  Serious: Yes (Hospitalization)
  Sender: FDA-Public Use
  Company Number: None

PATIENT
  Age: 65 Year
  Sex: Male

DRUGS (2)
  1. LEDIPASVIR/SOFOBUVIR [Suspect]
     Active Substance: LEDIPASVIR\SOFOSBUVIR
  2. XIFAXAN [Concomitant]
     Active Substance: RIFAXIMIN

REACTIONS (1)
  - Hepatic neoplasm [None]

NARRATIVE: CASE EVENT DATE: 20190510
